FAERS Safety Report 7669653-9 (Version None)
Quarter: 2011Q3

REPORT INFORMATION
  Report Type: 
  Country: None (occurrence: None)
  Receive Date: 20110808
  Receipt Date: 20110726
  Transmission Date: 20111222
  Serious: Yes (Other)
  Sender: FDA-Public Use
  Company Number: PHHY2011BR67977

PATIENT
  Age: 77 Year
  Sex: Female

DRUGS (3)
  1. TOFRANIL [Concomitant]
     Dosage: 25 MG, UNK
  2. CEBRILIN [Concomitant]
  3. DIOVAN [Suspect]
     Dosage: 160 MG, UNK

REACTIONS (1)
  - URINARY INCONTINENCE [None]
